FAERS Safety Report 17552986 (Version 1)
Quarter: 2020Q1

REPORT INFORMATION
  Report Type: Report from Study
  Country: US (occurrence: US)
  Receive Date: 20200317
  Receipt Date: 20200317
  Transmission Date: 20200409
  Serious: Yes (Other)
  Sender: FDA-Public Use
  Company Number: US-GILEAD-2020-0455323

PATIENT
  Age: 26 Year
  Sex: Male

DRUGS (2)
  1. AZTREONAM LYSINE [Suspect]
     Active Substance: AZTREONAM LYSINE
     Indication: CYSTIC FIBROSIS
     Dosage: 1 DOSAGE FORM, TID; 28 DAYS ON, 28 DAYS OFF
     Route: 055
     Dates: start: 20190519, end: 201912
  2. AZTREONAM LYSINE [Suspect]
     Active Substance: AZTREONAM LYSINE
     Indication: BURKHOLDERIA MALLEI INFECTION

REACTIONS (2)
  - Cystic fibrosis [Recovered/Resolved]
  - Drug eruption [Unknown]
